FAERS Safety Report 23843432 (Version 1)
Quarter: 2024Q2

REPORT INFORMATION
  Report Type: Spontaneous
  Country: DE (occurrence: DE)
  Receive Date: 20240510
  Receipt Date: 20240510
  Transmission Date: 20240715
  Serious: Yes (Hospitalization, Other)
  Sender: FDA-Public Use
  Company Number: None

PATIENT
  Age: 1 Day
  Sex: Female
  Weight: 2 kg

DRUGS (4)
  1. VENLAFAXINE [Suspect]
     Active Substance: VENLAFAXINE HYDROCHLORIDE
     Indication: Product used for unknown indication
     Dosage: MOTHER DOSE: 150 [MG/D], 24-FEB-2023 TO 22-NOV-2023 FOR 271 DAYS.
     Route: 064
  2. CALCIUM CARBONATE\SODIUM ALGINATE\SODIUM BICARBONATE [Concomitant]
     Active Substance: CALCIUM CARBONATE\SODIUM ALGINATE\SODIUM BICARBONATE
     Indication: Product used for unknown indication
     Dosage: MOTHER: AS NEEDED, NO MORE THAN 5 APPLICATIONS
     Route: 064
  3. PROGESTERONE [Concomitant]
     Active Substance: PROGESTERONE
     Indication: Product used for unknown indication
     Dosage: MOTHER DOSE: 400 [MG/D]/ 400 MG/D, REDUCED TO 200 MG/D IN THE COURSE.
     Route: 064
  4. vigantol [Concomitant]
     Indication: Product used for unknown indication
     Dosage: MOTHER DOSE: 1000 [IE/D], 24-FEB-2023 TO 22-NOV-2023 FOR 271 DAYS.
     Route: 064

REACTIONS (2)
  - Myoclonus [Recovered/Resolved]
  - Foetal exposure during pregnancy [Unknown]

NARRATIVE: CASE EVENT DATE: 20231101
